FAERS Safety Report 24084913 (Version 1)
Quarter: 2024Q3

REPORT INFORMATION
  Report Type: Report from Study
  Country: BE (occurrence: BE)
  Receive Date: 20240712
  Receipt Date: 20240712
  Transmission Date: 20241017
  Serious: No
  Sender: PIERRE FABRE MEDICAMENT
  Company Number: BE-PFM-2021-11332

PATIENT
  Age: 56 Year
  Sex: Male

DRUGS (1)
  1. PROPRANOLOL HYDROCHLORIDE [Suspect]
     Active Substance: PROPRANOLOL HYDROCHLORIDE
     Indication: Product used for unknown indication
     Dosage: UNK
     Route: 065

REACTIONS (2)
  - Product use issue [Unknown]
  - Off label use [Unknown]
